FAERS Safety Report 10007163 (Version 1)
Quarter: 2014Q1

REPORT INFORMATION
  Report Type: Spontaneous
  Country: US (occurrence: None)
  Receive Date: 20140312
  Receipt Date: 20140312
  Transmission Date: 20141002
  Serious: Yes (Hospitalization)
  Sender: FDA-Public Use
  Company Number: None

PATIENT
  Age: 87 Year
  Sex: Female
  Weight: 99 kg

DRUGS (13)
  1. FENTANYL PATCH [Suspect]
     Indication: PAIN
     Dosage: PRIOR TO ADMISSION ?1 PATCH EVERY3 DAYS TOPICAL
  2. DIVALPROEX [Suspect]
     Indication: DEMENTIA WITH LEWY BODIES
     Route: 048
  3. RIVASTIGMINE [Concomitant]
  4. RANITIDINE [Concomitant]
  5. ATORVASTATIN [Concomitant]
  6. BRIMONIDINE [Concomitant]
  7. LEVOTHYROXINE [Concomitant]
  8. DULOXETINE [Concomitant]
  9. GLIMEPIRIDE [Concomitant]
  10. LORAZEPAM [Concomitant]
  11. MULTIVITAMIN [Concomitant]
  12. OXYCODONE/ACETAMINOPHEN [Concomitant]
  13. POLYETHYLENE GLYCOL [Concomitant]

REACTIONS (2)
  - Mental status changes [None]
  - Pain [None]
